FAERS Safety Report 9224315 (Version 1)
Quarter: 2013Q2

REPORT INFORMATION
  Report Type: Spontaneous
  Country: DE (occurrence: DE)
  Receive Date: 20130411
  Receipt Date: 20130411
  Transmission Date: 20140414
  Serious: Yes (Other)
  Sender: FDA-Public Use
  Company Number: PHHY2013DE034988

PATIENT
  Sex: 0

DRUGS (1)
  1. LEPONEX [Suspect]
     Indication: TREMOR
     Dosage: 6.75 MG, TID
     Route: 048

REACTIONS (1)
  - Hypoglycaemia [Unknown]
